FAERS Safety Report 22599055 (Version 1)
Quarter: 2023Q2

REPORT INFORMATION
  Report Type: Other
  Country: US (occurrence: US)
  Receive Date: 20230614
  Receipt Date: 20230614
  Transmission Date: 20230722
  Serious: No
  Sender: FDA-Public Use
  Company Number: US-AMNEAL PHARMACEUTICALS-2023-AMRX-00825

PATIENT

DRUGS (1)
  1. ETHINYL ESTRADIOL\NORELGESTROMIN [Suspect]
     Active Substance: ETHINYL ESTRADIOL\NORELGESTROMIN
     Indication: Contraception
     Dosage: UNK
     Route: 065

REACTIONS (8)
  - Dysmenorrhoea [Unknown]
  - Intermenstrual bleeding [Unknown]
  - Libido decreased [Unknown]
  - Headache [Unknown]
  - Weight increased [Unknown]
  - Device issue [Unknown]
  - Product substitution issue [Unknown]
  - Product adhesion issue [Unknown]
